FAERS Safety Report 17466171 (Version 2)
Quarter: 2020Q1

REPORT INFORMATION
  Report Type: Spontaneous
  Country: US (occurrence: US)
  Receive Date: 20200227
  Receipt Date: 20200327
  Transmission Date: 20200409
  Serious: No
  Sender: FDA-Public Use
  Company Number: US-ASTRAZENECA-2020SE26412

PATIENT
  Sex: Male
  Weight: 104.3 kg

DRUGS (3)
  1. VITAMINS [Concomitant]
     Active Substance: VITAMINS
     Route: 065
  2. BYDUREON BCISE [Suspect]
     Active Substance: EXENATIDE
     Indication: TYPE 2 DIABETES MELLITUS
     Route: 058
  3. INSULIN HUMOLOG [Concomitant]
     Route: 065

REACTIONS (4)
  - Device issue [Unknown]
  - Injection site haemorrhage [Unknown]
  - Intentional device misuse [Unknown]
  - Incorrect dose administered [Unknown]
